FAERS Safety Report 10543909 (Version 1)
Quarter: 2014Q4

REPORT INFORMATION
  Report Type: Spontaneous
  Country: US (occurrence: None)
  Receive Date: 20141024
  Receipt Date: 20141024
  Transmission Date: 20150529
  Serious: Yes (Hospitalization)
  Sender: FDA-Public Use
  Company Number: None

PATIENT
  Age: 45 Year
  Sex: Female
  Weight: 91.4 kg

DRUGS (2)
  1. CARBOPLATIN. [Suspect]
     Active Substance: CARBOPLATIN
     Dates: end: 20140930
  2. TAXOL [Suspect]
     Active Substance: PACLITAXEL
     Dates: end: 20140930

REACTIONS (5)
  - Abdominal pain [None]
  - Leukopenia [None]
  - Disease progression [None]
  - Anaemia [None]
  - Abdominal distension [None]

NARRATIVE: CASE EVENT DATE: 20141004
